FAERS Safety Report 20694641 (Version 2)
Quarter: 2022Q2

REPORT INFORMATION
  Report Type: Report from Study
  Country: IT (occurrence: IT)
  Receive Date: 20220411
  Receipt Date: 20220429
  Transmission Date: 20220721
  Serious: Yes (Hospitalization, Other)
  Sender: FDA-Public Use
  Company Number: IT-NOVARTISPH-NVSC2021IT099189

PATIENT
  Age: 70 Year
  Sex: Male
  Weight: 72 kg

DRUGS (7)
  1. RYDAPT [Suspect]
     Active Substance: MIDOSTAURIN
     Indication: Systemic mastocytosis
     Dosage: 50 MG, BID
     Route: 048
     Dates: start: 20200221, end: 202003
  2. RYDAPT [Suspect]
     Active Substance: MIDOSTAURIN
     Dosage: 50 OT, BID
     Route: 048
     Dates: start: 202003, end: 20200527
  3. RYDAPT [Suspect]
     Active Substance: MIDOSTAURIN
     Dosage: 75 OT, BID
     Route: 048
     Dates: start: 20200528, end: 20210202
  4. RYDAPT [Suspect]
     Active Substance: MIDOSTAURIN
     Dosage: 100 OT, BID
     Route: 048
     Dates: start: 20210202
  5. RYDAPT [Suspect]
     Active Substance: MIDOSTAURIN
     Dosage: UNK
     Route: 065
     Dates: start: 20220215
  6. RYDAPT [Suspect]
     Active Substance: MIDOSTAURIN
     Dosage: 25 MG, BID
     Route: 050
     Dates: start: 20220404
  7. PREDNISONE [Concomitant]
     Active Substance: PREDNISONE
     Indication: Product used for unknown indication
     Dosage: 5 MG, QD
     Route: 065
     Dates: start: 20200221

REACTIONS (7)
  - Pyelonephritis [Recovered/Resolved with Sequelae]
  - Endocarditis staphylococcal [Recovered/Resolved with Sequelae]
  - Pyrexia [Recovered/Resolved with Sequelae]
  - Thrombocytopenia [Not Recovered/Not Resolved]
  - Systemic mastocytosis [Unknown]
  - Malignant neoplasm progression [Unknown]
  - Nausea [Not Recovered/Not Resolved]

NARRATIVE: CASE EVENT DATE: 20210221
